FAERS Safety Report 5515575-9 (Version None)
Quarter: 2007Q4

REPORT INFORMATION
  Report Type: 
  Country: None (occurrence: None)
  Receive Date: 20071113
  Receipt Date: 20070611
  Transmission Date: 20080405
  Serious: No
  Sender: FDA-Public Use
  Company Number: A0655054A

PATIENT
  Age: 70 Year
  Sex: Female

DRUGS (7)
  1. COREG [Suspect]
     Dosage: 12.5MG TWICE PER DAY
     Route: 048
  2. PROTONIX [Concomitant]
  3. FLONASE [Concomitant]
  4. ALLEGRA [Concomitant]
  5. ASMACORT [Concomitant]
  6. ALTACE [Concomitant]
  7. LIPITOR [Concomitant]
     Dates: end: 20070528

REACTIONS (2)
  - FATIGUE [None]
  - PAIN IN EXTREMITY [None]
